FAERS Safety Report 10344202 (Version 1)
Quarter: 2014Q3

REPORT INFORMATION
  Report Type: Spontaneous
  Country: US (occurrence: None)
  Receive Date: 20140725
  Receipt Date: 20140725
  Transmission Date: 20150326
  Serious: Yes (Other)
  Sender: FDA-Public Use
  Company Number: None

PATIENT

DRUGS (1)
  1. ONDANSETRON 4 MG/2 ML EMCURE PHARMACEUTICALS/HERITAGE [Suspect]
     Active Substance: ONDANSETRON
     Dosage: 4 MG Q4H PRN  INTRAVENOUS
     Route: 042

REACTIONS (2)
  - Drug effect decreased [None]
  - Product substitution issue [None]

NARRATIVE: CASE EVENT DATE: 20140724
